FAERS Safety Report 22627486 (Version 1)
Quarter: 2023Q2

REPORT INFORMATION
  Report Type: Report from Study
  Country: US (occurrence: US)
  Receive Date: 20230622
  Receipt Date: 20230622
  Transmission Date: 20230721
  Serious: Yes (Other)
  Sender: FDA-Public Use
  Company Number: US-JNJFOC-20230648839

PATIENT
  Age: 39 Year
  Sex: Female

DRUGS (12)
  1. TREMFYA [Suspect]
     Active Substance: GUSELKUMAB
     Indication: Psoriasis
     Dosage: 1 INJECTION
     Route: 058
     Dates: start: 202212
  2. TREMFYA [Suspect]
     Active Substance: GUSELKUMAB
     Indication: Psoriatic arthropathy
  3. NYSTATIN [Concomitant]
     Active Substance: NYSTATIN
  4. TIZANIDINE [Concomitant]
     Active Substance: TIZANIDINE
  5. FLUCONAZOLE [Concomitant]
     Active Substance: FLUCONAZOLE
  6. FLUCONAZOLE [Concomitant]
     Active Substance: FLUCONAZOLE
  7. PANTOPRAZOLE [Concomitant]
     Active Substance: PANTOPRAZOLE
  8. OXYCODONE [Concomitant]
     Active Substance: OXYCODONE
  9. ERGOCALCIFEROL [Concomitant]
     Active Substance: ERGOCALCIFEROL
  10. KETOCONAZOLE [Concomitant]
     Active Substance: KETOCONAZOLE
  11. FLONASE [Concomitant]
     Active Substance: FLUTICASONE PROPIONATE
  12. XYZAL [Concomitant]
     Active Substance: LEVOCETIRIZINE DIHYDROCHLORIDE

REACTIONS (8)
  - Psoriatic arthropathy [Not Recovered/Not Resolved]
  - Syringe issue [Unknown]
  - Device deployment issue [Unknown]
  - Injection site bruising [Unknown]
  - Candida infection [Recovered/Resolved]
  - Underdose [Unknown]
  - Accidental exposure to product [Unknown]
  - Device issue [Unknown]

NARRATIVE: CASE EVENT DATE: 20230401
